FAERS Safety Report 24053623 (Version 2)
Quarter: 2024Q3

REPORT INFORMATION
  Report Type: Spontaneous
  Country: JP (occurrence: JP)
  Receive Date: 20240705
  Receipt Date: 20240722
  Transmission Date: 20241017
  Serious: Yes (Death, Other)
  Sender: GILEAD
  Company Number: JP-GILEAD-2024-0679336

PATIENT
  Age: 80 Year
  Sex: Male

DRUGS (3)
  1. VEKLURY [Suspect]
     Active Substance: REMDESIVIR
     Indication: COVID-19
     Dosage: UNK
     Route: 065
  2. DECADRON (DEXAMETHASONE SODIUM PHOSPHATE) [Concomitant]
     Active Substance: DEXAMETHASONE SODIUM PHOSPHATE
     Indication: COVID-19
  3. NINTEDANIB ESYLATE [Concomitant]
     Active Substance: NINTEDANIB ESYLATE

REACTIONS (3)
  - Bronchopulmonary aspergillosis [Fatal]
  - Pneumonia cytomegaloviral [Fatal]
  - Respiratory failure [Fatal]
